FAERS Safety Report 20200696 (Version 1)
Quarter: 2021Q4

REPORT INFORMATION
  Report Type: Spontaneous
  Country: US (occurrence: US)
  Receive Date: 20211217
  Receipt Date: 20211217
  Transmission Date: 20220303
  Serious: Yes (Other)
  Sender: FDA-Public Use
  Company Number: US-JNJFOC-20211221902

PATIENT
  Sex: Male

DRUGS (2)
  1. SIMPONI [Suspect]
     Active Substance: GOLIMUMAB
     Indication: Ankylosing spondylitis
     Route: 058
  2. ENBREL [Suspect]
     Active Substance: ETANERCEPT
     Indication: Ankylosing spondylitis
     Route: 065
     Dates: start: 2000, end: 2009

REACTIONS (4)
  - Sepsis [Recovered/Resolved]
  - Pharyngitis streptococcal [Recovered/Resolved]
  - Endodontic procedure [Unknown]
  - Adverse drug reaction [Unknown]
